FAERS Safety Report 25486878 (Version 4)
Quarter: 2025Q3

REPORT INFORMATION
  Report Type: Spontaneous
  Country: JP (occurrence: JP)
  Receive Date: 20250627
  Receipt Date: 20250905
  Transmission Date: 20251021
  Serious: Yes (Death)
  Sender: BOEHRINGER INGELHEIM
  Company Number: JP-NBI-2025-BI-079217

PATIENT
  Age: 9 Decade
  Sex: Male

DRUGS (1)
  1. IDARUCIZUMAB [Suspect]
     Active Substance: IDARUCIZUMAB
     Indication: Procoagulant therapy
     Dates: start: 20250615, end: 20250615

REACTIONS (2)
  - Traumatic intracranial haemorrhage [Fatal]
  - Condition aggravated [Fatal]

NARRATIVE: CASE EVENT DATE: 20250615
